FAERS Safety Report 19625184 (Version 16)
Quarter: 2022Q4

REPORT INFORMATION
  Report Type: Spontaneous
  Country: CA (occurrence: CA)
  Receive Date: 20210728
  Receipt Date: 20221202
  Transmission Date: 20230113
  Serious: Yes (Life-Threatening, Hospitalization, Disabling, Other)
  Sender: FDA-Public Use
  Company Number: CA-009507513-2107CAN007895

PATIENT
  Age: 44 Year
  Sex: Female
  Weight: 97 kg

DRUGS (57)
  1. EMEND [Suspect]
     Active Substance: APREPITANT
     Indication: Product used for unknown indication
     Dosage: UNK
     Route: 065
  2. EMEND [Suspect]
     Active Substance: APREPITANT
     Dosage: UNK
     Route: 042
  3. EMEND [Suspect]
     Active Substance: APREPITANT
     Dosage: UNK
     Route: 042
  4. REMICADE [Suspect]
     Active Substance: INFLIXIMAB
     Indication: Rheumatoid arthritis
     Dosage: 500 MILLIGRAM
     Route: 042
  5. REMICADE [Suspect]
     Active Substance: INFLIXIMAB
     Indication: Psoriatic arthropathy
  6. REMICADE [Suspect]
     Active Substance: INFLIXIMAB
     Indication: Psoriasis
  7. REMICADE [Suspect]
     Active Substance: INFLIXIMAB
     Indication: Crohn^s disease
  8. REMICADE [Suspect]
     Active Substance: INFLIXIMAB
     Indication: Ankylosing spondylitis
  9. SIMPONI [Suspect]
     Active Substance: GOLIMUMAB
     Indication: Rheumatoid arthritis
     Dosage: DOSAGE FORM: SOLUTION SUBCUTANEOUS
     Route: 052
  10. SIMPONI [Suspect]
     Active Substance: GOLIMUMAB
     Dosage: DOSAGE FORM: SOLUTION SUBCUTANEOUS
     Route: 058
  11. SIMPONI [Suspect]
     Active Substance: GOLIMUMAB
     Dosage: DOSAGE FORM: SOLUTION SUBCUTANEOUS
     Route: 058
  12. ACETAMINOPHEN\OXYCODONE HYDROCHLORIDE [Suspect]
     Active Substance: ACETAMINOPHEN\OXYCODONE HYDROCHLORIDE
     Indication: Product used for unknown indication
     Dosage: UNK
     Route: 065
  13. ACETAMINOPHEN\OXYCODONE HYDROCHLORIDE [Suspect]
     Active Substance: ACETAMINOPHEN\OXYCODONE HYDROCHLORIDE
     Indication: Rheumatoid arthritis
     Dosage: UNK
     Route: 065
  14. ACETAMINOPHEN\OXYCODONE HYDROCHLORIDE [Suspect]
     Active Substance: ACETAMINOPHEN\OXYCODONE HYDROCHLORIDE
     Dosage: UNK
     Route: 065
  15. ACTEMRA [Suspect]
     Active Substance: TOCILIZUMAB
     Indication: Rheumatoid arthritis
     Dosage: DOSAGE FORM: SOLUTION FOR INFUSION, DOSE: 752 MILLIGRAM, FREQUENCY: 1 EVERY 1 WEEK (QW)
     Route: 042
  16. ACTEMRA [Suspect]
     Active Substance: TOCILIZUMAB
     Dosage: DOSAGE FORM: NOT SPECIFIED
     Route: 042
  17. ACTEMRA [Suspect]
     Active Substance: TOCILIZUMAB
     Dosage: DOSAGE FORM: NOT SPECIFIED
     Route: 042
  18. ACTEMRA [Suspect]
     Active Substance: TOCILIZUMAB
     Dosage: DOSAGE FORM: NOT SPECIFIED
     Route: 042
  19. ACTEMRA [Suspect]
     Active Substance: TOCILIZUMAB
     Dosage: DOSAGE FORM: NOT SPECIFIED
     Route: 065
  20. ACTEMRA [Suspect]
     Active Substance: TOCILIZUMAB
     Dosage: DOSAGE FORM: NOT SPECIFIED
     Route: 042
  21. ACTEMRA [Suspect]
     Active Substance: TOCILIZUMAB
     Dosage: DOSAGE FORM: NOT SPECIFIED
     Route: 065
  22. ALENDRONIC ACID [Suspect]
     Active Substance: ALENDRONIC ACID
     Indication: Rheumatoid arthritis
     Dosage: UNK
     Route: 048
  23. ALENDRONIC ACID [Suspect]
     Active Substance: ALENDRONIC ACID
     Dosage: UNK
     Route: 048
  24. ALENDRONIC ACID [Suspect]
     Active Substance: ALENDRONIC ACID
     Dosage: UNK
     Route: 048
  25. ACETAMINOPHEN [Suspect]
     Active Substance: ACETAMINOPHEN
     Indication: Product used for unknown indication
     Dosage: UNK
     Route: 065
  26. ACETAMINOPHEN [Suspect]
     Active Substance: ACETAMINOPHEN
     Dosage: UNK
     Route: 065
  27. PREDNISONE [Suspect]
     Active Substance: PREDNISONE
     Indication: Rheumatoid arthritis
     Dosage: UNK
     Route: 065
  28. PREDNISONE [Suspect]
     Active Substance: PREDNISONE
     Dosage: UNK
     Route: 065
  29. PREDNISONE [Suspect]
     Active Substance: PREDNISONE
     Dosage: UNK
     Route: 048
  30. ARAVA [Suspect]
     Active Substance: LEFLUNOMIDE
     Indication: Rheumatoid arthritis
     Dosage: 20 MILLIGRAM, ONE EVERY ONE DAY
     Route: 048
  31. ARAVA [Suspect]
     Active Substance: LEFLUNOMIDE
     Dosage: 20 MILLIGRAM, ONE EVERY ONE DAY
     Route: 048
  32. ARAVA [Suspect]
     Active Substance: LEFLUNOMIDE
     Dosage: 20 MILLIGRAM, ONE EVERY ONE DAY
     Route: 048
  33. CETIRIZINE [Suspect]
     Active Substance: CETIRIZINE HYDROCHLORIDE
     Indication: Rheumatoid arthritis
     Dosage: 10 MILLIGRAM
     Route: 065
  34. CHLORAPREP [Suspect]
     Active Substance: CHLORHEXIDINE GLUCONATE\ISOPROPYL ALCOHOL
     Indication: Product used for unknown indication
     Dosage: DOSAGE FORM: SOLUTION
     Route: 061
  35. CHLORAPREP [Suspect]
     Active Substance: CHLORHEXIDINE GLUCONATE\ISOPROPYL ALCOHOL
     Dosage: DOSAGE FORM: SOLUTION
     Route: 048
  36. CHLORAPREP [Suspect]
     Active Substance: CHLORHEXIDINE GLUCONATE\ISOPROPYL ALCOHOL
     Dosage: DOSAGE FORM: SOLUTION
     Route: 065
  37. CHLORHEXIDINE [Suspect]
     Active Substance: CHLORHEXIDINE
     Indication: Product used for unknown indication
     Dosage: DOSAGE FORM: NOT SPECIFIED
     Route: 061
  38. CHLORHEXIDINE [Suspect]
     Active Substance: CHLORHEXIDINE
     Dosage: DOSAGE FORM: NOT SPECIFIED
     Route: 048
  39. CHLORHEXIDINE [Suspect]
     Active Substance: CHLORHEXIDINE
     Dosage: DOSAGE FORM: NOT SPECIFIED
     Route: 065
  40. CIMZIA [Suspect]
     Active Substance: CERTOLIZUMAB PEGOL
     Indication: Rheumatoid arthritis
     Dosage: DOSAGE FORM: SOLUTION FOR INJECTION
     Route: 042
  41. CIMZIA [Suspect]
     Active Substance: CERTOLIZUMAB PEGOL
     Dosage: DOSAGE FORM: SOLUTION FOR INJECTION
     Route: 058
  42. CIMZIA [Suspect]
     Active Substance: CERTOLIZUMAB PEGOL
     Dosage: DOSAGE FORM: SOLUTION FOR INJECTION
     Route: 058
  43. CORTISONE ACETATE [Suspect]
     Active Substance: CORTISONE ACETATE
     Indication: Rheumatoid arthritis
     Dosage: 25 MILLIGRAM, 1 EVERY 1 DAY
     Route: 061
  44. CORTISONE ACETATE [Suspect]
     Active Substance: CORTISONE ACETATE
     Dosage: OINMENT
     Route: 065
  45. DESOXIMETASONE [Suspect]
     Active Substance: DESOXIMETASONE
     Indication: Rheumatoid arthritis
     Dosage: 25 MILLIGRAM, 1 EVERY 1 DAY
     Route: 061
  46. DESOXIMETASONE [Suspect]
     Active Substance: DESOXIMETASONE
     Indication: Product used for unknown indication
     Dosage: DOSAGE FORM NOT SPECIFIED
     Route: 048
  47. DESOXIMETASONE [Suspect]
     Active Substance: DESOXIMETASONE
     Dosage: UNK
     Route: 058
  48. DESOXIMETASONE [Suspect]
     Active Substance: DESOXIMETASONE
     Dosage: UNK
     Route: 048
  49. ENBREL [Suspect]
     Active Substance: ETANERCEPT
     Indication: Rheumatoid arthritis
     Dosage: UNK
     Route: 058
  50. ENBREL [Suspect]
     Active Substance: ETANERCEPT
     Dosage: UNK
     Route: 065
  51. FOLIC ACID [Suspect]
     Active Substance: FOLIC ACID
     Indication: Rheumatoid arthritis
     Dosage: DOSAGE FORM NOT SPECIFIED
     Route: 065
  52. FOLIC ACID [Suspect]
     Active Substance: FOLIC ACID
     Dosage: 5 MILLIGRAM
     Route: 065
  53. FOLIC ACID [Suspect]
     Active Substance: FOLIC ACID
     Dosage: DOSAGE FORM NOT SPECIFIED
     Route: 065
  54. HUMIRA [Suspect]
     Active Substance: ADALIMUMAB
     Indication: Rheumatoid arthritis
     Dosage: 40 MILLIGRAM; DOSAGE FORM: SOLUTION SUBCUTANEOUS
     Route: 058
  55. TYLENOL [Suspect]
     Active Substance: ACETAMINOPHEN
     Indication: Rheumatoid arthritis
     Dosage: DOSAGE FORM: ONE EVERY 1 WEEK
     Route: 058
  56. ALENDRONATE SODIUM [Suspect]
     Active Substance: ALENDRONATE SODIUM
  57. FOSAMAX [Suspect]
     Active Substance: ALENDRONATE SODIUM

REACTIONS (20)
  - Alopecia [Not Recovered/Not Resolved]
  - Contraindicated product administered [Not Recovered/Not Resolved]
  - Contusion [Not Recovered/Not Resolved]
  - Drug intolerance [Not Recovered/Not Resolved]
  - Drug ineffective [Not Recovered/Not Resolved]
  - Duodenal ulcer perforation [Not Recovered/Not Resolved]
  - Dyspnoea [Not Recovered/Not Resolved]
  - Maternal exposure during pregnancy [Not Recovered/Not Resolved]
  - Folliculitis [Not Recovered/Not Resolved]
  - Hand deformity [Not Recovered/Not Resolved]
  - Headache [Not Recovered/Not Resolved]
  - Insomnia [Not Recovered/Not Resolved]
  - Irritable bowel syndrome [Not Recovered/Not Resolved]
  - Joint swelling [Not Recovered/Not Resolved]
  - Lower respiratory tract infection [Not Recovered/Not Resolved]
  - Muscle injury [Not Recovered/Not Resolved]
  - Muscle spasticity [Not Recovered/Not Resolved]
  - Musculoskeletal stiffness [Not Recovered/Not Resolved]
  - Nasopharyngitis [Not Recovered/Not Resolved]
  - Off label use [Not Recovered/Not Resolved]
